FAERS Safety Report 10181289 (Version 4)
Quarter: 2014Q3

REPORT INFORMATION
  Report Type: Spontaneous
  Country: US (occurrence: US)
  Receive Date: 20140519
  Receipt Date: 20140731
  Transmission Date: 20150326
  Serious: Yes (Disabling)
  Sender: FDA-Public Use
  Company Number: US-009507513-1109USA02458

PATIENT
  Sex: Male

DRUGS (1)
  1. PROPECIA [Suspect]
     Active Substance: FINASTERIDE
     Indication: ALOPECIA
     Dosage: 1 MG, QD
     Route: 048
     Dates: start: 2007

REACTIONS (11)
  - Anxiety [Not Recovered/Not Resolved]
  - Sexual dysfunction [Not Recovered/Not Resolved]
  - Painful ejaculation [Unknown]
  - Haemorrhoids [Unknown]
  - Ejaculation delayed [Unknown]
  - Erectile dysfunction [Recovering/Resolving]
  - Sperm concentration decreased [Unknown]
  - Pruritus [Not Recovered/Not Resolved]
  - Emotional distress [Not Recovered/Not Resolved]
  - Ejaculation failure [Unknown]
  - Libido decreased [Recovering/Resolving]

NARRATIVE: CASE EVENT DATE: 2007
